FAERS Safety Report 24978026 (Version 1)
Quarter: 2025Q1

REPORT INFORMATION
  Report Type: Spontaneous
  Country: US (occurrence: US)
  Receive Date: 20250217
  Receipt Date: 20250217
  Transmission Date: 20250409
  Serious: No
  Sender: PERRIGO
  Company Number: US-PERRIGO-24US002964

PATIENT
  Age: 35 Year
  Sex: Female
  Weight: 77.098 kg

DRUGS (1)
  1. NICOTINE POLACRILEX [Suspect]
     Active Substance: NICOTINE
     Indication: Smoking cessation therapy
     Route: 002
     Dates: start: 20240320, end: 20240320

REACTIONS (3)
  - Gingival discomfort [Recovered/Resolved]
  - Noninfective gingivitis [Recovered/Resolved]
  - Gingival pain [Recovered/Resolved]

NARRATIVE: CASE EVENT DATE: 20240320
